FAERS Safety Report 5674124-5 (Version None)
Quarter: 2008Q1

REPORT INFORMATION
  Report Type: 
  Country: None (occurrence: None)
  Receive Date: 20080320
  Receipt Date: 20080313
  Transmission Date: 20080703
  Serious: Yes (Hospitalization)
  Sender: FDA-Public Use
  Company Number: JP-NOVOPROD-273271

PATIENT
  Sex: Female

DRUGS (2)
  1. NOVOLIN R [Suspect]
     Dosage: 24 IU, QD
     Route: 058
     Dates: start: 19991001, end: 20050301
  2. NOVOLIN N [Suspect]
     Indication: TYPE 2 DIABETES MELLITUS
     Dosage: 4 UNK, UNK
     Route: 058
     Dates: start: 19991001, end: 20050301

REACTIONS (3)
  - HYPERTHYROIDISM [None]
  - KETOACIDOSIS [None]
  - NASOPHARYNGITIS [None]
